FAERS Safety Report 20475656 (Version 3)
Quarter: 2023Q2

REPORT INFORMATION
  Report Type: Spontaneous
  Country: US (occurrence: US)
  Receive Date: 20220215
  Receipt Date: 20230419
  Transmission Date: 20230722
  Serious: No
  Sender: FDA-Public Use
  Company Number: US-PFIZER INC-202200094027

PATIENT
  Age: 40 Year
  Sex: Female

DRUGS (1)
  1. GENOTROPIN [Suspect]
     Active Substance: SOMATROPIN
     Dosage: 0.6 MG, DAILY (0.6MG SUBCUTANEOUS EVERYMORNING 25 DAYS)
     Route: 058

REACTIONS (2)
  - Device use issue [Unknown]
  - Device issue [Unknown]
